FAERS Safety Report 17466710 (Version 5)
Quarter: 2022Q2

REPORT INFORMATION
  Report Type: Spontaneous
  Country: CA (occurrence: CA)
  Receive Date: 20200227
  Receipt Date: 20220405
  Transmission Date: 20220720
  Serious: Yes (Hospitalization, Other)
  Sender: FDA-Public Use
  Company Number: CA-SAMSUNG BIOEPIS-SB-2019-21865

PATIENT
  Age: 62 Year
  Sex: Male
  Weight: 72 kg

DRUGS (10)
  1. INFLIXIMAB [Suspect]
     Active Substance: INFLIXIMAB
     Indication: Crohn^s disease
     Route: 042
  2. HYDROCORTISONE SODIUM SUCCINATE [Concomitant]
     Active Substance: HYDROCORTISONE SODIUM SUCCINATE
     Indication: Premedication
     Route: 042
  3. METHOTREXATE [Concomitant]
     Active Substance: METHOTREXATE
     Indication: Product used for unknown indication
     Route: 048
  4. METHOTREXATE [Concomitant]
     Active Substance: METHOTREXATE
     Route: 048
  5. FOLIC ACID [Concomitant]
     Active Substance: FOLIC ACID
     Indication: Product used for unknown indication
     Route: 065
  6. FOLIC ACID [Concomitant]
     Active Substance: FOLIC ACID
     Route: 065
  7. CELEBREX [Concomitant]
     Active Substance: CELECOXIB
     Indication: Arthropathy
     Route: 065
  8. COLCHICINE [Concomitant]
     Active Substance: COLCHICINE
     Indication: Product used for unknown indication
     Route: 048
  9. FLAGYL [Concomitant]
     Active Substance: METRONIDAZOLE\METRONIDAZOLE HYDROCHLORIDE
     Indication: Product used for unknown indication
     Route: 048
  10. HYDROCORTISONE [Concomitant]
     Active Substance: HYDROCORTISONE
     Indication: Premedication
     Dosage: UNKNOWN
     Route: 065

REACTIONS (27)
  - Abscess [Not Recovered/Not Resolved]
  - Abscess intestinal [Not Recovered/Not Resolved]
  - Anaemia vitamin B12 deficiency [Not Recovered/Not Resolved]
  - Arthralgia [Not Recovered/Not Resolved]
  - Blood pressure fluctuation [Not Recovered/Not Resolved]
  - Bursa disorder [Not Recovered/Not Resolved]
  - Bursitis [Not Recovered/Not Resolved]
  - Fistula [Not Recovered/Not Resolved]
  - Haematuria [Not Recovered/Not Resolved]
  - Infusion site extravasation [Recovered/Resolved]
  - Osteoarthritis [Not Recovered/Not Resolved]
  - Peritonitis [Not Recovered/Not Resolved]
  - Polyarthritis [Not Recovered/Not Resolved]
  - Rotator cuff syndrome [Not Recovered/Not Resolved]
  - Skin cancer [Not Recovered/Not Resolved]
  - Skin lesion [Not Recovered/Not Resolved]
  - Tendon disorder [Not Recovered/Not Resolved]
  - Tendonitis [Not Recovered/Not Resolved]
  - Weight decreased [Not Recovered/Not Resolved]
  - Weight increased [Not Recovered/Not Resolved]
  - White blood cell disorder [Not Recovered/Not Resolved]
  - Wrist fracture [Not Recovered/Not Resolved]
  - Drug level below therapeutic [Not Recovered/Not Resolved]
  - Therapeutic product effect incomplete [Not Recovered/Not Resolved]
  - Intentional product use issue [Not Recovered/Not Resolved]
  - Intercepted product administration error [Not Recovered/Not Resolved]
  - Off label use [Not Recovered/Not Resolved]
